FAERS Safety Report 23161925 (Version 1)
Quarter: 2023Q4

REPORT INFORMATION
  Report Type: Spontaneous
  Country: US (occurrence: US)
  Receive Date: 20231109
  Receipt Date: 20231109
  Transmission Date: 20240110
  Serious: Yes (Life-Threatening, Hospitalization, Other)
  Sender: FDA-Public Use
  Company Number: US-Accord-386659

PATIENT
  Age: 95 Year
  Sex: Female

DRUGS (1)
  1. ALLOPURINOL [Suspect]
     Active Substance: ALLOPURINOL
     Indication: Gout
     Route: 048

REACTIONS (5)
  - Stevens-Johnson syndrome [Recovered/Resolved]
  - Acute kidney injury [Unknown]
  - Staphylococcal bacteraemia [Unknown]
  - Cellulitis staphylococcal [Unknown]
  - Incorrect dose administered [Unknown]
